FAERS Safety Report 10865804 (Version 3)
Quarter: 2015Q3

REPORT INFORMATION
  Report Type: Report from Study
  Country: UG (occurrence: UG)
  Receive Date: 20150224
  Receipt Date: 20150716
  Transmission Date: 20151125
  Serious: Yes (Life-Threatening, Hospitalization, Other)
  Sender: FDA-Public Use
  Company Number: UG-GILEAD-2014-0120166

PATIENT
  Age: 29 Year
  Sex: Female
  Weight: 56 kg

DRUGS (9)
  1. FOLIC ACID/FERROUS SULPHATE [Concomitant]
     Indication: PROPHYLAXIS
     Dosage: 200 MG, QD
     Route: 048
     Dates: start: 20140923, end: 20141022
  2. BACTRIM [Concomitant]
     Active Substance: SULFAMETHOXAZOLE\TRIMETHOPRIM
     Indication: INFECTION PROPHYLAXIS
  3. FOLIC ACID/FERROUS SULPHATE [Concomitant]
     Indication: NEURODEVELOPMENTAL DISORDER
  4. EFAVIRENZ/EMTRICITABINE/TENOFOVIR DISOPROXIL FUMARATE [Suspect]
     Active Substance: EFAVIRENZ\EMTRICITABINE\TENOFOVIR DISOPROXIL FUMARATE
     Dosage: 1 DF, QD
     Route: 048
     Dates: start: 20140701
  5. CLOTRIMAZOLE. [Concomitant]
     Active Substance: CLOTRIMAZOLE
     Indication: VULVOVAGINAL CANDIDIASIS
     Dosage: 100 MG, QD
     Route: 048
     Dates: start: 20140701, end: 20140715
  6. EFAVIRENZ/EMTRICITABINE/TENOFOVIR DISOPROXIL FUMARATE [Suspect]
     Active Substance: EFAVIRENZ\EMTRICITABINE\TENOFOVIR DISOPROXIL FUMARATE
     Indication: HIV INFECTION
     Dosage: 1 DF, QD
     Route: 048
     Dates: start: 20140701
  7. MICROGYNON FE [Concomitant]
     Indication: CONTRACEPTION
     Dosage: 180 ?G, QD
     Route: 065
     Dates: start: 20140701, end: 20140923
  8. COTRIMOXAZOLE [Concomitant]
     Active Substance: SULFAMETHOXAZOLE\TRIMETHOPRIM
     Indication: INFECTION PROPHYLAXIS
     Dosage: 960 MG, QD
     Route: 048
     Dates: start: 20060601
  9. EUGYNON                            /00022701/ [Concomitant]
     Indication: CONTRACEPTION

REACTIONS (7)
  - Vulvovaginal candidiasis [Unknown]
  - Abortion spontaneous [Recovered/Resolved]
  - Vulvovaginal candidiasis [Recovered/Resolved]
  - Exposure during pregnancy [Recovered/Resolved]
  - Amylase increased [Recovered/Resolved]
  - Abortion threatened [Recovered/Resolved]
  - Upper respiratory tract infection [Unknown]

NARRATIVE: CASE EVENT DATE: 20140701
